FAERS Safety Report 5482314-X (Version None)
Quarter: 2007Q4

REPORT INFORMATION
  Report Type: 
  Country: None (occurrence: None)
  Receive Date: 20071011
  Receipt Date: 20071002
  Transmission Date: 20080405
  Serious: Yes (Other)
  Sender: FDA-Public Use
  Company Number: US-BRISTOL-MYERS SQUIBB COMPANY-13926308

PATIENT
  Age: 50 Year
  Sex: Female

DRUGS (1)
  1. CARDIOLITE [Suspect]
     Indication: CARDIAC FUNCTION TEST
     Dates: start: 20050701

REACTIONS (7)
  - CONTUSION [None]
  - HEART RATE IRREGULAR [None]
  - PAIN IN EXTREMITY [None]
  - RENAL DISORDER [None]
  - SPLEEN DISORDER [None]
  - SPLENIC INJURY [None]
  - VISION BLURRED [None]
